FAERS Safety Report 5346282-3 (Version None)
Quarter: 2007Q2

REPORT INFORMATION
  Report Type: 
  Country: None (occurrence: None)
  Receive Date: 20070420
  Receipt Date: 20060817
  Transmission Date: 20071010
  Serious: Yes (Hospitalization)
  Sender: FDA-Public Use
  Company Number: 06P-163-0341044-00

PATIENT
  Age: 42 Year
  Sex: Male
  Weight: 122 kg

DRUGS (2)
  1. DEPAKOTE [Suspect]
     Indication: BIPOLAR DISORDER
     Dosage: 500 MG, 4 IN 1 D, PER ORAL
     Route: 048
     Dates: start: 19931101, end: 20030901
  2. LITHIUM CARBONATE [Concomitant]

REACTIONS (1)
  - PANCREATITIS ACUTE [None]
